FAERS Safety Report 9912722 (Version 1)
Quarter: 2014Q1

REPORT INFORMATION
  Report Type: Spontaneous
  Country: US (occurrence: None)
  Receive Date: 20140218
  Receipt Date: 20140218
  Transmission Date: 20141002
  Serious: Yes (Hospitalization)
  Sender: FDA-Public Use
  Company Number: None

PATIENT
  Age: 89 Year
  Sex: Male
  Weight: 67.7 kg

DRUGS (1)
  1. MIRABEGRON [Suspect]
     Indication: INCONTINENCE
     Route: 048
     Dates: start: 20130422, end: 20130531

REACTIONS (1)
  - Hypertension [None]
